FAERS Safety Report 20443715 (Version 1)
Quarter: 2022Q1

REPORT INFORMATION
  Report Type: Spontaneous
  Country: CA (occurrence: CA)
  Receive Date: 20220208
  Receipt Date: 20220208
  Transmission Date: 20220423
  Serious: Yes (Other)
  Sender: FDA-Public Use
  Company Number: CA-PFIZER INC-202200149153

PATIENT
  Age: 79 Year
  Sex: Female

DRUGS (2)
  1. CYTOMEL [Suspect]
     Active Substance: LIOTHYRONINE SODIUM
     Dosage: 5 UG, DAILY
     Dates: start: 2008
  2. FEMARA [Concomitant]
     Active Substance: LETROZOLE
     Dosage: UNK

REACTIONS (1)
  - Breast cancer [Unknown]
